FAERS Safety Report 10229933 (Version 1)
Quarter: 2014Q2

REPORT INFORMATION
  Report Type: Other
  Country: DK (occurrence: GB)
  Receive Date: 20140611
  Receipt Date: 20140611
  Transmission Date: 20141212
  Serious: Yes (Life-Threatening, Other)
  Sender: FDA-Public Use
  Company Number: GB-FRI-1000068009

PATIENT
  Age: 43 Year
  Sex: Male

DRUGS (3)
  1. CITALOPRAM [Suspect]
     Indication: DEPRESSION
  2. SILDENAFIL [Suspect]
     Indication: ERECTILE DYSFUNCTION
  3. COCAINE [Suspect]

REACTIONS (2)
  - Headache [Unknown]
  - Aortic dissection [Unknown]
